FAERS Safety Report 7747429-1 (Version None)
Quarter: 2011Q3

REPORT INFORMATION
  Report Type: 
  Country: None (occurrence: None)
  Receive Date: 20110913
  Receipt Date: 20110908
  Transmission Date: 20111222
  Serious: Yes (Other)
  Sender: FDA-Public Use
  Company Number: HR-GLAXOSMITHKLINE-B0746694A

PATIENT
  Age: 39 Year
  Sex: Male
  Weight: 56 kg

DRUGS (2)
  1. ZYPREXA [Concomitant]
     Indication: SCHIZOPHRENIA
     Dosage: 5MG PER DAY
     Route: 048
  2. LAMICTAL [Suspect]
     Indication: HEADACHE
     Dosage: 50MG PER DAY
     Route: 048
     Dates: start: 20110325, end: 20110415

REACTIONS (4)
  - VOMITING [None]
  - MYALGIA [None]
  - VERTIGO [None]
  - MALAISE [None]
